FAERS Safety Report 14561869 (Version 1)
Quarter: 2018Q1

REPORT INFORMATION
  Report Type: Spontaneous
  Country: US (occurrence: US)
  Receive Date: 20180221
  Receipt Date: 20180221
  Transmission Date: 20180509
  Serious: Yes (Disabling)
  Sender: FDA-Public Use
  Company Number: None

PATIENT
  Sex: Female

DRUGS (1)
  1. CONTRAVE [Suspect]
     Active Substance: BUPROPION HYDROCHLORIDE\NALTREXONE HYDROCHLORIDE
     Indication: WEIGHT INCREASED
     Route: 048

REACTIONS (7)
  - Crying [None]
  - Anger [None]
  - Emotional disorder [None]
  - Depression [None]
  - Anxiety [None]
  - Nausea [None]
  - Drug dose omission [None]

NARRATIVE: CASE EVENT DATE: 20160607
